FAERS Safety Report 18461272 (Version 1)
Quarter: 2020Q4

REPORT INFORMATION
  Report Type: Spontaneous
  Country: BG (occurrence: BG)
  Receive Date: 20201104
  Receipt Date: 20201104
  Transmission Date: 20210114
  Serious: Yes (Hospitalization, Other)
  Sender: FDA-Public Use
  Company Number: BG-ACCORD-207292

PATIENT
  Age: 63 Year
  Sex: Male

DRUGS (10)
  1. BISOPROLOL [Suspect]
     Active Substance: BISOPROLOL
     Indication: CARDIAC FAILURE
     Dosage: 5 MG, QD
  2. PERINDOPRIL [Suspect]
     Active Substance: PERINDOPRIL
     Indication: CARDIAC FAILURE
     Dosage: 4 MG, UNK
  3. SINTROM [Suspect]
     Active Substance: ACENOCOUMAROL
     Indication: CARDIAC FAILURE
     Dosage: UNK, UNK
  4. HUMAN INSULIN MIX [Concomitant]
     Active Substance: INSULIN HUMAN
     Indication: DIABETES MELLITUS
     Dosage: 10 IU, UNK
  5. TORASEMIDE [Suspect]
     Active Substance: TORSEMIDE
     Indication: CARDIAC FAILURE
     Dosage: 10 MG, BID
     Route: 065
  6. ACETYLSALICYLIC ACID [Suspect]
     Active Substance: ASPIRIN
     Indication: CARDIAC FAILURE
     Dosage: 100 MG, QD
  7. TORASEMIDE [Suspect]
     Active Substance: TORSEMIDE
     Indication: CARDIAC FAILURE
     Dosage: 200 MG, BID
     Route: 065
  8. TORASEMIDE [Suspect]
     Active Substance: TORSEMIDE
     Indication: PRODUCT USED FOR UNKNOWN INDICATION
     Dosage: 200 MG, QD
     Route: 065
  9. SPIRONOLACTONE. [Suspect]
     Active Substance: SPIRONOLACTONE
     Indication: CARDIAC FAILURE
     Dosage: 25 MG,  QD
  10. GLICLAZIDE [Suspect]
     Active Substance: GLICLAZIDE
     Indication: CARDIAC FAILURE
     Dosage: 60 MG, QD

REACTIONS (11)
  - Microalbuminuria [Unknown]
  - Glomerular filtration rate decreased [Unknown]
  - Skin lesion [Recovering/Resolving]
  - Petechiae [Recovering/Resolving]
  - Haematuria [Unknown]
  - Blister [Recovering/Resolving]
  - Cardiac failure [Recovered/Resolved]
  - Rash [Recovering/Resolving]
  - Drug ineffective [Unknown]
  - Proteinuria [Unknown]
  - Orthopnoea [Unknown]

NARRATIVE: CASE EVENT DATE: 201805
